FAERS Safety Report 9557455 (Version 2)
Quarter: 2014Q2

REPORT INFORMATION
  Report Type: Spontaneous
  Country: DE (occurrence: DE)
  Receive Date: 20130926
  Receipt Date: 20140409
  Transmission Date: 20141212
  Serious: Yes (Other)
  Sender: FDA-Public Use
  Company Number: DE-UCBSA-098838

PATIENT
  Age: 40 Year
  Sex: Female

DRUGS (1)
  1. LEVETIRACETAM [Suspect]
     Indication: CONVULSION
     Dosage: UNKNOWN DOSE

REACTIONS (4)
  - Atonic seizures [Recovered/Resolved]
  - Glioblastoma [Not Recovered/Not Resolved]
  - Depression [Unknown]
  - Adjustment disorder [Unknown]
